FAERS Safety Report 6774916-5 (Version None)
Quarter: 2010Q2

REPORT INFORMATION
  Report Type: 
  Country: None (occurrence: None)
  Receive Date: 20100616
  Receipt Date: 20100616
  Transmission Date: 20101027
  Serious: Yes (Death)
  Sender: FDA-Public Use
  Company Number: None

PATIENT
  Age: 96 Year
  Sex: Female
  Weight: 49.8957 kg

DRUGS (1)
  1. HALDOL [Suspect]
     Dates: start: 20100422, end: 20100423

REACTIONS (3)
  - ASPIRATION [None]
  - HEART RATE INCREASED [None]
  - TREMOR [None]
